FAERS Safety Report 24122108 (Version 2)
Quarter: 2024Q3

REPORT INFORMATION
  Report Type: Spontaneous
  Country: US (occurrence: US)
  Receive Date: 20240722
  Receipt Date: 20240912
  Transmission Date: 20241016
  Serious: No
  Sender: AMGEN
  Company Number: US-AMGEN-USASP2024140339

PATIENT
  Age: 53 Year
  Sex: Female

DRUGS (3)
  1. TEPEZZA [Suspect]
     Active Substance: TEPROTUMUMAB-TRBW
     Indication: Endocrine ophthalmopathy
     Dosage: 1 DOSAGE FORM, Q3WK (1 INFUSION (FIRST INFUSION))
     Route: 042
     Dates: start: 20230201
  2. TEPEZZA [Suspect]
     Active Substance: TEPROTUMUMAB-TRBW
     Dosage: 1 DOSAGE FORM, Q3WK (SECOND INFUSION)
     Route: 042
     Dates: start: 2023
  3. TEPEZZA [Suspect]
     Active Substance: TEPROTUMUMAB-TRBW
     Dosage: 1 DOSAGE FORM, Q3WK (LAST INFUSION)
     Route: 042
     Dates: start: 20230731, end: 20230731

REACTIONS (15)
  - Fatigue [Unknown]
  - Feeling abnormal [Unknown]
  - Blister [Recovered/Resolved]
  - Headache [Unknown]
  - Muscle spasms [Not Recovered/Not Resolved]
  - Ear discomfort [Recovered/Resolved]
  - Nail pigmentation [Recovered/Resolved]
  - Onychoclasis [Recovered/Resolved]
  - Onychomadesis [Recovered/Resolved]
  - Alopecia [Not Recovered/Not Resolved]
  - Incorrect dose administered [Unknown]
  - Product storage error [Unknown]
  - Product communication issue [Unknown]
  - Poor venous access [Unknown]
  - Product administration error [Unknown]

NARRATIVE: CASE EVENT DATE: 20230201
